FAERS Safety Report 6083746-1 (Version None)
Quarter: 2009Q1

REPORT INFORMATION
  Report Type: 
  Country: None (occurrence: None)
  Receive Date: 20090219
  Receipt Date: 20090206
  Transmission Date: 20090719
  Serious: Yes (Other)
  Sender: FDA-Public Use
  Company Number: BR-PFIZER INC-2009167846

PATIENT

DRUGS (2)
  1. FRONTAL [Suspect]
     Indication: PANIC DISORDER
     Dosage: UNK
     Route: 048
  2. FRONTAL [Suspect]
     Indication: ANXIETY

REACTIONS (8)
  - AMNESIA [None]
  - CHROMATURIA [None]
  - DRY MOUTH [None]
  - HEART RATE INCREASED [None]
  - MUSCULOSKELETAL DISCOMFORT [None]
  - PRURITUS [None]
  - PRURITUS GENITAL [None]
  - WEIGHT INCREASED [None]
